FAERS Safety Report 18754128 (Version 1)
Quarter: 2021Q1

REPORT INFORMATION
  Report Type: Spontaneous
  Country: US (occurrence: US)
  Receive Date: 20210119
  Receipt Date: 20210119
  Transmission Date: 20210419
  Serious: No
  Sender: FDA-Public Use
  Company Number: US-DRREDDYS-USA/USA/20/0130624

PATIENT
  Age: 69 Year
  Sex: Female
  Weight: 69.75 kg

DRUGS (1)
  1. GUAIFENESIN AND PSEUDOEPHEDRINE HYDROCHLORIDE EXTENDED?RELEASE TABLETS [Suspect]
     Active Substance: GUAIFENESIN\PSEUDOEPHEDRINE HYDROCHLORIDE
     Indication: HYPERSENSITIVITY
     Dates: start: 20201228, end: 20201229

REACTIONS (4)
  - Insomnia [Unknown]
  - Heart rate increased [Unknown]
  - Lacrimation increased [Unknown]
  - Rhinorrhoea [Unknown]
